FAERS Safety Report 7078901-8 (Version None)
Quarter: 2010Q4

REPORT INFORMATION
  Report Type: 
  Country: None (occurrence: None)
  Receive Date: 20101102
  Receipt Date: 20101028
  Transmission Date: 20110411
  Serious: No
  Sender: FDA-Public Use
  Company Number: US-PFIZER INC-2009299292

PATIENT
  Sex: Female

DRUGS (1)
  1. SOLU-MEDROL [Suspect]
     Indication: CELLULITIS
     Dosage: 125 MG, 2 TIMES A WEEK
     Dates: start: 20090601

REACTIONS (7)
  - APPLICATION SITE DISCOMFORT [None]
  - DRUG EFFECT DELAYED [None]
  - DYSPNOEA [None]
  - HEART RATE INCREASED [None]
  - MUSCULAR WEAKNESS [None]
  - PAIN [None]
  - PALPITATIONS [None]
